FAERS Safety Report 5190874-1 (Version None)
Quarter: 2006Q4

REPORT INFORMATION
  Report Type: 
  Country: None (occurrence: None)
  Receive Date: 20061222
  Receipt Date: 20061215
  Transmission Date: 20070319
  Serious: Yes (Death)
  Sender: FDA-Public Use
  Company Number: FR-SANOFI-SYNTHELABO-A02200603239

PATIENT
  Age: 75 Year
  Sex: Male
  Weight: 57 kg

DRUGS (3)
  1. AVASTIN [Suspect]
     Indication: NEOPLASM MALIGNANT
     Route: 041
     Dates: start: 20061025, end: 20061025
  2. ELOXATIN [Suspect]
     Indication: NEOPLASM MALIGNANT
     Route: 041
     Dates: start: 20061025, end: 20061025
  3. FLUOROURACILE DAKOTA PHARM [Suspect]
     Indication: NEOPLASM MALIGNANT
     Route: 041
     Dates: start: 20061025, end: 20061027

REACTIONS (5)
  - APHASIA [None]
  - CEREBRAL HAEMORRHAGE [None]
  - COMA [None]
  - HEMIPLEGIA [None]
  - HYPERTENSION [None]
